FAERS Safety Report 16070469 (Version 1)
Quarter: 2019Q1

REPORT INFORMATION
  Report Type: Spontaneous
  Country: US (occurrence: US)
  Receive Date: 20190314
  Receipt Date: 20190314
  Transmission Date: 20190418
  Serious: No
  Sender: FDA-Public Use
  Company Number: US-SHIRE-US201908412

PATIENT
  Age: 44 Year
  Sex: Female

DRUGS (1)
  1. NATPARA (PARATHYROID HORMONE) [Suspect]
     Active Substance: PARATHYROID HORMONE
     Indication: BLOOD CALCIUM DECREASED
     Dosage: 50 MICROGRAM, 1X/DAY:QD
     Route: 065

REACTIONS (2)
  - Muscle strain [Unknown]
  - Back pain [Unknown]

NARRATIVE: CASE EVENT DATE: 201901
